FAERS Safety Report 7759123-1 (Version None)
Quarter: 2011Q3

REPORT INFORMATION
  Report Type: 
  Country: None (occurrence: None)
  Receive Date: 20110919
  Receipt Date: 20110912
  Transmission Date: 20111222
  Serious: Yes (Hospitalization, Other)
  Sender: FDA-Public Use
  Company Number: PHHY2009CN27051

PATIENT
  Age: 49 Year
  Sex: Female
  Weight: 50 kg

DRUGS (14)
  1. NEORAL [Suspect]
     Dosage: 60 MG/DAY
     Route: 048
  2. METHOTREXATE [Concomitant]
     Indication: STEM CELL TRANSPLANT
     Dosage: 15 MG/M2, UNK
  3. SEMUSTINE [Concomitant]
     Indication: STEM CELL TRANSPLANT
     Dosage: 250 MG/M2
  4. NEORAL [Suspect]
     Indication: STEM CELL TRANSPLANT
     Dosage: 2MG/KG/DAY
     Route: 048
  5. NEORAL [Suspect]
     Dosage: 6 MG/KG/DAY
     Route: 048
  6. OMEPRAZOLE [Concomitant]
     Dosage: 40 MG, BID
     Route: 042
  7. FLUDARABINE PHOSPHATE [Concomitant]
     Indication: STEM CELL TRANSPLANT
     Dosage: 50 MG/DAY
  8. FLUID/ELECTROLYTE REPLACEMENT THERAPY [Concomitant]
  9. NEORAL [Suspect]
     Dosage: 30 MG/DAY
     Route: 048
  10. METHOTREXATE [Concomitant]
     Dosage: 10 MG/M2, UNK
  11. ANTILYMPHOCYTE GLOBULIN [Concomitant]
     Indication: STEM CELL TRANSPLANT
     Dosage: 1.25MG/KG/DAY
  12. MYCOPHENOLATE MOFETIL [Concomitant]
     Indication: STEM CELL TRANSPLANT
     Dosage: 0.5 MG, BID
  13. CYCLOPHOSPHAMIDE [Concomitant]
     Indication: STEM CELL TRANSPLANT
     Dosage: 50 MG/KG
  14. BUSULFAN [Concomitant]
     Indication: STEM CELL TRANSPLANT
     Dosage: 0.8 MG/KG, Q6H

REACTIONS (25)
  - PANCREATITIS ACUTE [None]
  - ABDOMINAL PAIN UPPER [None]
  - INTERSTITIAL LUNG DISEASE [None]
  - HEPATIC CYST [None]
  - NAUSEA [None]
  - ABDOMINAL TENDERNESS [None]
  - URINARY TRACT INFECTION [None]
  - DYSPNOEA [None]
  - CHEST DISCOMFORT [None]
  - PYREXIA [None]
  - OROPHARYNGEAL PAIN [None]
  - ACUTE GRAFT VERSUS HOST DISEASE IN INTESTINE [None]
  - RENAL CYST [None]
  - CAPILLARY LEAK SYNDROME [None]
  - DYSPEPSIA [None]
  - OEDEMA [None]
  - RENAL IMPAIRMENT [None]
  - ABDOMINAL DISTENSION [None]
  - DIARRHOEA [None]
  - RALES [None]
  - WEIGHT INCREASED [None]
  - HYPOPHAGIA [None]
  - PRODUCTIVE COUGH [None]
  - PULMONARY OEDEMA [None]
  - VOMITING [None]
